FAERS Safety Report 13627118 (Version 1)
Quarter: 2017Q2

REPORT INFORMATION
  Report Type: Spontaneous
  Country: AR (occurrence: AR)
  Receive Date: 20170608
  Receipt Date: 20170608
  Transmission Date: 20170830
  Serious: Yes (Other)
  Sender: FDA-Public Use
  Company Number: AR-PFIZER INC-2017202940

PATIENT
  Age: 59 Year
  Sex: Female

DRUGS (1)
  1. AROMASIN [Suspect]
     Active Substance: EXEMESTANE
     Indication: BREAST CANCER METASTATIC
     Dosage: 1 DF, DAILY
     Dates: start: 2016

REACTIONS (8)
  - Increased upper airway secretion [Unknown]
  - Cough [Not Recovered/Not Resolved]
  - Malaise [Unknown]
  - Throat irritation [Unknown]
  - Vomiting [Recovered/Resolved]
  - Rhinitis [Not Recovered/Not Resolved]
  - Neoplasm progression [Unknown]
  - Thrombosis [Recovered/Resolved]

NARRATIVE: CASE EVENT DATE: 2016
